FAERS Safety Report 17245095 (Version 1)
Quarter: 2020Q1

REPORT INFORMATION
  Report Type: Spontaneous
  Country: US (occurrence: US)
  Receive Date: 20200108
  Receipt Date: 20200108
  Transmission Date: 20200409
  Serious: Yes (Other)
  Sender: FDA-Public Use
  Company Number: US-ROCHE-2517063

PATIENT
  Sex: Male

DRUGS (15)
  1. AMLODIPINE [Concomitant]
     Active Substance: AMLODIPINE BESYLATE
  2. KETOROLAC [Concomitant]
     Active Substance: KETOROLAC TROMETHAMINE
  3. RIFAMPIN. [Concomitant]
     Active Substance: RIFAMPIN
  4. AZITHROMYCIN ANHYDROUS. [Concomitant]
     Active Substance: AZITHROMYCIN ANHYDROUS
  5. PREDNISOLONE. [Concomitant]
     Active Substance: PREDNISOLONE
  6. ESBRIET [Suspect]
     Active Substance: PIRFENIDONE
     Indication: ASTHMA
     Route: 048
     Dates: start: 20180816, end: 202001
  7. BENZONATATE. [Concomitant]
     Active Substance: BENZONATATE
  8. CLOPIDOGREL [Concomitant]
     Active Substance: CLOPIDOGREL BISULFATE
  9. FLOVENT HFA [Concomitant]
     Active Substance: FLUTICASONE PROPIONATE
  10. NORTRIPTYLIN [Concomitant]
     Active Substance: NORTRIPTYLINE
  11. ETHAMBUTOL [Concomitant]
     Active Substance: ETHAMBUTOL HYDROCHLORIDE
  12. OMEPRAZOLE. [Concomitant]
     Active Substance: OMEPRAZOLE
  13. ATORVASTATIN [Concomitant]
     Active Substance: ATORVASTATIN
  14. LOSARTAN. [Concomitant]
     Active Substance: LOSARTAN
  15. PREDNISONE. [Concomitant]
     Active Substance: PREDNISONE

REACTIONS (1)
  - Blindness [Unknown]
